FAERS Safety Report 9745277 (Version 2)
Quarter: 2013Q4

REPORT INFORMATION
  Report Type: Report from Study
  Country: JP (occurrence: JP)
  Receive Date: 20131211
  Receipt Date: 20131231
  Transmission Date: 20140711
  Serious: Yes (Other)
  Sender: FDA-Public Use
  Company Number: JP-JNJFOC-20131200370

PATIENT
  Age: 88 Year
  Sex: Female

DRUGS (12)
  1. STELARA [Suspect]
     Indication: PSORIASIS
     Route: 058
     Dates: start: 20120911, end: 20120911
  2. STELARA [Suspect]
     Indication: PSORIASIS
     Route: 058
     Dates: start: 20121009, end: 20121009
  3. STELARA [Suspect]
     Indication: PSORIASIS
     Route: 058
     Dates: start: 20130319, end: 20130319
  4. STELARA [Suspect]
     Indication: PSORIASIS
     Route: 058
     Dates: start: 20130618, end: 20130618
  5. STELARA [Suspect]
     Indication: PSORIASIS
     Route: 058
     Dates: start: 20121225, end: 20121225
  6. ANTEBATE [Concomitant]
     Indication: PSORIASIS
     Route: 061
     Dates: start: 20120809
  7. OXAROL [Concomitant]
     Indication: PSORIASIS
     Route: 061
     Dates: start: 20120809
  8. ISCOTIN [Concomitant]
     Indication: PROPHYLAXIS
     Route: 048
     Dates: start: 20120521, end: 20121009
  9. DOVONEX [Concomitant]
     Indication: PSORIASIS
     Route: 061
     Dates: start: 20121225
  10. OXAROL [Concomitant]
     Indication: PRODUCT USED FOR UNKNOWN INDICATION
     Route: 061
  11. RINDERON [Concomitant]
     Route: 048
     Dates: start: 20130910, end: 20130925
  12. ALLELOCK [Concomitant]
     Route: 048
     Dates: start: 20130910, end: 20130925

REACTIONS (3)
  - Seborrhoeic dermatitis [Recovered/Resolved]
  - Photosensitivity reaction [Recovered/Resolved]
  - Collagen disorder [Recovered/Resolved]
